FAERS Safety Report 9663743 (Version 2)
Quarter: 2013Q4

REPORT INFORMATION
  Report Type: Report from Study
  Country: CO (occurrence: CO)
  Receive Date: 20131101
  Receipt Date: 20131119
  Transmission Date: 20140711
  Serious: Yes (Hospitalization)
  Sender: FDA-Public Use
  Company Number: PHHY2013CO122357

PATIENT
  Age: 54 Year
  Sex: Female

DRUGS (3)
  1. AFINITOR [Suspect]
     Indication: PANCREATIC NEUROENDOCRINE TUMOUR
     Dosage: 10 MG, DAILY
     Route: 048
     Dates: start: 20130711, end: 20130917
  2. LYRICA [Concomitant]
     Indication: MYALGIA
     Dosage: 75 MG, DAILY
     Route: 048
  3. LYRICA [Concomitant]
     Indication: OFF LABEL USE

REACTIONS (4)
  - Skin hyperpigmentation [Recovering/Resolving]
  - Blister [Recovering/Resolving]
  - Thermal burn [Unknown]
  - Drug hypersensitivity [Unknown]
